FAERS Safety Report 6220997-7 (Version None)
Quarter: 2009Q2

REPORT INFORMATION
  Report Type: 
  Country: None (occurrence: None)
  Receive Date: 20090610
  Receipt Date: 20090608
  Transmission Date: 20091009
  Serious: Yes (Hospitalization, Disabling)
  Sender: FDA-Public Use
  Company Number: JP-B.I. PHARMACEUTICALS,INC./RIDGEFIELD-2009-BP-04802NB

PATIENT
  Sex: Female
  Weight: 67.1 kg

DRUGS (3)
  1. MICARDIS [Suspect]
     Indication: HYPERTENSION
     Dosage: 40MG
     Route: 048
     Dates: start: 20060901
  2. SUNRYTHM [Concomitant]
     Dosage: 100MG
     Route: 048
  3. AMARYL [Concomitant]
     Dosage: 1MG
     Route: 048
     Dates: start: 20060901

REACTIONS (1)
  - CEREBRAL INFARCTION [None]
